FAERS Safety Report 10017670 (Version 1)
Quarter: 2014Q1

REPORT INFORMATION
  Report Type: Spontaneous
  Country: US (occurrence: US)
  Receive Date: 20140318
  Receipt Date: 20140318
  Transmission Date: 20141002
  Serious: No
  Sender: FDA-Public Use
  Company Number: US-009507513-1403USA005458

PATIENT
  Sex: Female

DRUGS (1)
  1. NEXPLANON [Suspect]
     Indication: CONTRACEPTION
     Dosage: 68MG/ ONE ROD EVERY 3 YEARS.
     Route: 059
     Dates: start: 20130920

REACTIONS (3)
  - Implant site pruritus [Unknown]
  - Implant site erythema [Unknown]
  - Device deployment issue [Unknown]
